FAERS Safety Report 24866513 (Version 1)
Quarter: 2025Q1

REPORT INFORMATION
  Report Type: Spontaneous
  Country: PT (occurrence: PT)
  Receive Date: 20250121
  Receipt Date: 20250121
  Transmission Date: 20250409
  Serious: Yes (Hospitalization, Other)
  Sender: NOVITIUM PHARMA
  Company Number: PT-NOVITIUMPHARMA-2025PTNVP00165

PATIENT
  Age: 81 Year
  Sex: Female

DRUGS (1)
  1. DEXAMETHASONE [Suspect]
     Active Substance: DEXAMETHASONE
     Indication: Inflammation
     Route: 061

REACTIONS (3)
  - Drug abuse [Unknown]
  - Ulcerative keratitis [Recovering/Resolving]
  - Keratopathy [Recovering/Resolving]
